FAERS Safety Report 11251055 (Version 1)
Quarter: 2015Q3

REPORT INFORMATION
  Report Type: Spontaneous
  Country: US (occurrence: US)
  Receive Date: 20150708
  Receipt Date: 20150708
  Transmission Date: 20151125
  Serious: No
  Sender: FDA-Public Use
  Company Number: US-ELI_LILLY_AND_COMPANY-US201107007534

PATIENT
  Age: 58 Year
  Sex: Female

DRUGS (5)
  1. PROZAC [Suspect]
     Active Substance: FLUOXETINE HYDROCHLORIDE
     Indication: PREMENSTRUAL SYNDROME
     Dosage: 20 MG, QD
     Dates: start: 1986
  2. PROZAC [Suspect]
     Active Substance: FLUOXETINE HYDROCHLORIDE
     Dosage: 20 MG, UNK
  3. PROZAC [Suspect]
     Active Substance: FLUOXETINE HYDROCHLORIDE
     Dosage: 40 MG, UNK
  4. FLUOXETINE HYDROCHLORIDE. [Suspect]
     Active Substance: FLUOXETINE HYDROCHLORIDE
     Indication: PREMENSTRUAL SYNDROME
     Route: 065
  5. PROZAC [Suspect]
     Active Substance: FLUOXETINE HYDROCHLORIDE
     Dosage: 40 MG, UNK

REACTIONS (12)
  - Tongue disorder [Unknown]
  - Dysgeusia [Unknown]
  - Glossitis [Unknown]
  - Anger [Unknown]
  - Dry mouth [Unknown]
  - Cardiovascular disorder [Unknown]
  - Visual acuity reduced [Unknown]
  - Swollen tongue [Unknown]
  - Glossodynia [Unknown]
  - Intentional product misuse [Unknown]
  - Limb discomfort [Unknown]
  - Off label use [Unknown]

NARRATIVE: CASE EVENT DATE: 1986
